FAERS Safety Report 23747717 (Version 1)
Quarter: 2024Q2

REPORT INFORMATION
  Report Type: Spontaneous
  Country: US (occurrence: US)
  Receive Date: 20240416
  Receipt Date: 20240416
  Transmission Date: 20240716
  Serious: No
  Sender: FDA-Public Use
  Company Number: US-BIOGEN-2023BI01233232

PATIENT
  Sex: Female

DRUGS (1)
  1. VUMERITY [Suspect]
     Active Substance: DIROXIMEL FUMARATE
     Indication: Multiple sclerosis
     Dosage: ALSO STARTED ON 15-DEC-2022
     Route: 050
     Dates: start: 20221201

REACTIONS (3)
  - Flatulence [Unknown]
  - Rash erythematous [Unknown]
  - Flushing [Unknown]
